FAERS Safety Report 16281969 (Version 5)
Quarter: 2020Q4

REPORT INFORMATION
  Report Type: Other
  Country: CA (occurrence: CA)
  Receive Date: 20190507
  Receipt Date: 20201109
  Transmission Date: 20210113
  Serious: Yes (Other)
  Sender: FDA-Public Use
  Company Number: CA-APOTEX-2019AP013055

PATIENT
  Age: 49 Year
  Sex: Female

DRUGS (16)
  1. APO-LETROZOLE [Suspect]
     Active Substance: LETROZOLE
     Dosage: 3 DOSAGE FORM
     Route: 065
  2. IBRANCE [Suspect]
     Active Substance: PALBOCICLIB
     Indication: BREAST CANCER
     Dosage: UNK
     Route: 065
  3. ERIBULIN MESYLATE [Suspect]
     Active Substance: ERIBULIN MESYLATE
     Indication: BREAST CANCER
     Dosage: UNK (CYCLICAL)
     Route: 041
  4. CLODRONIC ACID [Suspect]
     Active Substance: CLODRONIC ACID
     Indication: BREAST CANCER
     Dosage: UNK
     Route: 065
  5. CAPECITABINE. [Suspect]
     Active Substance: CAPECITABINE
     Indication: BREAST CANCER
     Dosage: UNK
     Route: 048
  6. CLODRONATE DISODIUM [Suspect]
     Active Substance: CLODRONATE DISODIUM
     Indication: BREAST CANCER
     Dosage: UNK
     Route: 065
  7. ERIBULIN MESYLATE [Suspect]
     Active Substance: ERIBULIN MESYLATE
     Dosage: UNK
     Route: 042
  8. FULVESTRANT. [Suspect]
     Active Substance: FULVESTRANT
     Indication: BREAST CANCER
     Route: 005
  9. XELODA [Suspect]
     Active Substance: CAPECITABINE
     Indication: BREAST CANCER
     Dosage: UNK
     Route: 065
  10. PACLITAXEL. [Suspect]
     Active Substance: PACLITAXEL
     Indication: BREAST CANCER
     Dosage: UNK
     Route: 042
  11. PALBOCICLIB [Suspect]
     Active Substance: PALBOCICLIB
     Indication: BREAST CANCER
     Dosage: UNK
     Route: 065
  12. HALAVEN [Suspect]
     Active Substance: ERIBULIN MESYLATE
     Indication: BREAST CANCER
     Dosage: UNK
     Route: 042
  13. APO-LETROZOLE [Suspect]
     Active Substance: LETROZOLE
     Indication: BREAST CANCER
     Dosage: UNK
     Route: 065
  14. APO-LETROZOLE [Suspect]
     Active Substance: LETROZOLE
     Dosage: UNK
     Route: 065
  15. APO-LETROZOLE [Suspect]
     Active Substance: LETROZOLE
     Dosage: UNK
     Route: 065
  16. TAMOXIFEN [Suspect]
     Active Substance: TAMOXIFEN
     Indication: BREAST CANCER
     Dosage: UNK
     Route: 065

REACTIONS (14)
  - Metastases to central nervous system [Recovering/Resolving]
  - Neoplasm progression [Recovering/Resolving]
  - Breast cancer [Recovering/Resolving]
  - Headache [Recovering/Resolving]
  - Meningoencephalitis herpetic [Recovering/Resolving]
  - Platelet count decreased [Recovering/Resolving]
  - White blood cell count increased [Recovering/Resolving]
  - Metastases to liver [Recovering/Resolving]
  - Herpes simplex encephalitis [Unknown]
  - Metastases to eye [Recovering/Resolving]
  - Immunosuppression [Recovering/Resolving]
  - Asthenia [Recovering/Resolving]
  - Protein total increased [Recovering/Resolving]
  - Malignant neoplasm progression [Recovering/Resolving]
